FAERS Safety Report 8583621-4 (Version None)
Quarter: 2012Q3

REPORT INFORMATION
  Report Type: 
  Country: None (occurrence: None)
  Receive Date: 20120809
  Receipt Date: 20120626
  Transmission Date: 20120928
  Serious: Yes (Other)
  Sender: FDA-Public Use
  Company Number: JP-009507513-2012SP035866

PATIENT

DRUGS (27)
  1. PEG-INTRON [Suspect]
     Dosage: 80 ?G, UNKNOWN
     Dates: start: 20120614
  2. MEDICON (DEXTROMETHORPHAN HYDROBROMIDE) [Concomitant]
     Indication: PRODUCT USED FOR UNKNOWN INDICATION
     Dosage: FORMULATION: POR(POWDER)
     Route: 048
  3. RISEDRONATE SODIUM [Concomitant]
     Indication: PRODUCT USED FOR UNKNOWN INDICATION
     Dosage: FORMULATION: POR(POWDER)
     Route: 048
  4. PRIMPERAN TAB [Concomitant]
     Indication: PROPHYLAXIS
     Dosage: FORMULATION: POWDER
     Route: 048
     Dates: start: 20120424
  5. REBETOL [Suspect]
     Route: 048
     Dates: start: 20120606
  6. ANTIVIRAL (UNSPECIFIED) [Suspect]
     Indication: HEPATITIS C
     Dosage: 2250 MG, QD
     Route: 048
     Dates: start: 20120424, end: 20120507
  7. TELAVIC [Suspect]
     Indication: HEPATITIS C
     Route: 048
     Dates: start: 20120321, end: 20120612
  8. BENFOTIAMINE (+) CYANOCOBALAMIN (+) PYRIDOXINE HYDROCHLORIDE [Concomitant]
     Indication: PRODUCT USED FOR UNKNOWN INDICATION
     Dosage: FORMULATION: POR(POWDER)
     Route: 048
  9. PEG-INTRON [Suspect]
     Indication: HEPATITIS C
     Dosage: 1.5 ?G/KG, UNKNOWN
     Route: 058
     Dates: start: 20120424, end: 20120529
  10. REBETOL [Suspect]
     Dosage: 400 MG, QD
     Route: 048
     Dates: start: 20120515, end: 20120611
  11. DISOPYRAMIDE PHOSPHATE [Concomitant]
     Indication: PRODUCT USED FOR UNKNOWN INDICATION
     Dosage: FORMULATION: POR(POWDER) RHYTHMODAN R (DISOPYRAMIDE PHOSPHATE)
     Route: 048
  12. UNIPHYL [Concomitant]
     Indication: PRODUCT USED FOR UNKNOWN INDICATION
     Dosage: FORMULATION: POR(POWDER)
     Route: 048
  13. FAMOTIDINE D [Concomitant]
     Route: 048
  14. PLETAL [Concomitant]
     Indication: PRODUCT USED FOR UNKNOWN INDICATION
     Dosage: FORMULATION: POR(POWDER)  PLETAAL OD
     Route: 048
  15. RALOXIFENE HYDROCHLORIDE [Concomitant]
     Indication: PRODUCT USED FOR UNKNOWN INDICATION
     Dosage: FORMULATION: POR(POWDER)
     Route: 048
  16. QVAR 40 [Concomitant]
     Indication: PRODUCT USED FOR UNKNOWN INDICATION
     Dosage: FORMULATION: AERSOL; DOSAGE TEXT: TWICE/DAY; DAILY DOSE UNKNOWN
     Route: 055
  17. LOXONIN [Concomitant]
     Indication: PRODUCT USED FOR UNKNOWN INDICATION
     Dosage: FORMULATION: POWDER
     Route: 048
  18. REBETOL [Suspect]
     Route: 048
     Dates: start: 20120321, end: 20120605
  19. REBETOL [Suspect]
     Indication: HEPATITIS C
     Dosage: 600 MG, QD
     Route: 048
     Dates: start: 20120424, end: 20120514
  20. SELBEX [Concomitant]
     Indication: PRODUCT USED FOR UNKNOWN INDICATION
     Dosage: FORMULATION: POR(POWDER)
     Route: 048
  21. URSO 250 [Concomitant]
     Indication: HEPATITIS C
     Route: 048
     Dates: end: 20120410
  22. ANTIVIRAL (UNSPECIFIED) [Suspect]
     Dosage: 1500 MG, QD
     Route: 048
     Dates: start: 20120508, end: 20120611
  23. LEXOTAN [Concomitant]
     Indication: PRODUCT USED FOR UNKNOWN INDICATION
     Dosage: FORMULATION: POR(POWDER)
     Route: 048
  24. LENDORMIN [Concomitant]
     Indication: PRODUCT USED FOR UNKNOWN INDICATION
     Dosage: 0.5 MG, QD
     Route: 048
  25. RABEPRAZOLE SODIUM [Concomitant]
     Indication: PROPHYLAXIS
     Dosage: FORMULATION: POWDER
     Route: 048
     Dates: start: 20120424
  26. PEG-INTRON [Suspect]
     Dosage: 1.5MCG/KG/WEEK
     Route: 058
     Dates: start: 20120321
  27. BISOLVON [Concomitant]
     Indication: PRODUCT USED FOR UNKNOWN INDICATION
     Dosage: FORMULATION: POR(POWDER)
     Route: 048

REACTIONS (1)
  - ANAEMIA [None]
